FAERS Safety Report 21285099 (Version 1)
Quarter: 2022Q3

REPORT INFORMATION
  Report Type: Report from Study
  Country: CA (occurrence: None)
  Receive Date: 20220902
  Receipt Date: 20220902
  Transmission Date: 20221026
  Serious: Yes (Death, Other)
  Sender: FDA-Public Use
  Company Number: 2022A299303

PATIENT
  Sex: Female

DRUGS (10)
  1. TAGRISSO [Suspect]
     Active Substance: OSIMERTINIB
     Indication: Non-small cell lung cancer metastatic
     Route: 048
     Dates: start: 20211004
  2. CANDESARTAN [Concomitant]
     Active Substance: CANDESARTAN
  3. CLOPIDOGREL [Concomitant]
     Active Substance: CLOPIDOGREL BISULFATE
  4. ESOMEPRAZOLE [Concomitant]
     Active Substance: ESOMEPRAZOLE
  5. EZETIMIBE [Concomitant]
     Active Substance: EZETIMIBE
  6. IPRATROPIUM [Concomitant]
     Active Substance: IPRATROPIUM
     Dosage: 21MCG DAILY EACH NOSTRIL
  7. METOPROLOL [Concomitant]
     Active Substance: METOPROLOL
     Dosage: 50MG 3 AM + 3 PM
  8. ROSUVASTATIN [Concomitant]
     Active Substance: ROSUVASTATIN
  9. WARFARIN [Concomitant]
     Active Substance: WARFARIN
  10. MAGNESIUM CITRATE [Concomitant]
     Active Substance: MAGNESIUM CITRATE

REACTIONS (1)
  - Death [Fatal]
